FAERS Safety Report 23371583 (Version 1)
Quarter: 2024Q1

REPORT INFORMATION
  Report Type: Spontaneous
  Country: US (occurrence: None)
  Receive Date: 20240105
  Receipt Date: 20240105
  Transmission Date: 20240409
  Serious: Yes (Hospitalization)
  Sender: FDA-Public Use
  Company Number: None

PATIENT
  Age: 57 Year
  Sex: Female

DRUGS (3)
  1. OPSUMIT [Suspect]
     Active Substance: MACITENTAN
     Indication: Pulmonary arterial hypertension
     Dosage: FREQUENCY : DAILY;?
     Route: 048
     Dates: start: 202306
  2. UPTRAVI (MNTH 2 TITR) [Concomitant]
  3. UPTRAVI [Concomitant]
     Active Substance: SELEXIPAG

REACTIONS (3)
  - Product use issue [None]
  - Gastric haemorrhage [None]
  - Therapy interrupted [None]

NARRATIVE: CASE EVENT DATE: 20231216
